FAERS Safety Report 10154443 (Version 2)
Quarter: 2014Q2

REPORT INFORMATION
  Report Type: Spontaneous
  Country: BR (occurrence: BR)
  Receive Date: 20140506
  Receipt Date: 20140513
  Transmission Date: 20141212
  Serious: Yes (Hospitalization)
  Sender: FDA-Public Use
  Company Number: BR-JNJFOC-20140501598

PATIENT
  Age: 82 Year
  Sex: Female
  Weight: 51 kg

DRUGS (8)
  1. XARELTO [Suspect]
     Indication: CEREBROVASCULAR ACCIDENT PROPHYLAXIS
     Route: 048
     Dates: start: 201304, end: 201404
  2. XARELTO [Suspect]
     Indication: ATRIAL FIBRILLATION
     Route: 048
     Dates: start: 201304, end: 201404
  3. GALVUS [Concomitant]
     Indication: DIABETES MELLITUS
     Route: 048
     Dates: start: 201304
  4. HIGROTON [Concomitant]
     Indication: HYPERTENSION
     Route: 048
     Dates: start: 201304
  5. CARVEDILOL [Concomitant]
     Indication: CARDIAC DISORDER
     Route: 048
     Dates: start: 201304
  6. ALLOPURINOL [Concomitant]
     Route: 065
  7. ALDACTONE A [Concomitant]
     Route: 065
  8. LOSARTAN [Concomitant]
     Route: 065

REACTIONS (2)
  - Mouth ulceration [Recovering/Resolving]
  - Lichenoid keratosis [Recovering/Resolving]
